FAERS Safety Report 11402475 (Version 1)
Quarter: 2015Q3

REPORT INFORMATION
  Report Type: Spontaneous
  Country: US (occurrence: US)
  Receive Date: 20150821
  Receipt Date: 20150821
  Transmission Date: 20151125
  Serious: Yes (Other)
  Sender: FDA-Public Use
  Company Number: US-ROCHE-1347558

PATIENT
  Age: 55 Year
  Sex: Female

DRUGS (3)
  1. PEGASYS [Suspect]
     Active Substance: PEGINTERFERON ALFA-2A
     Indication: CHRONIC HEPATITIS C
     Route: 065
     Dates: start: 20140207
  2. RIBASPHERE RIBAPAK [Suspect]
     Active Substance: RIBAVIRIN
     Indication: CHRONIC HEPATITIS C
     Route: 065
     Dates: start: 20140207
  3. SOVALDI [Suspect]
     Active Substance: SOFOSBUVIR
     Indication: CHRONIC HEPATITIS C
     Route: 065
     Dates: start: 20140207

REACTIONS (12)
  - Hyperventilation [Unknown]
  - Fatigue [Unknown]
  - Suicidal ideation [Unknown]
  - Headache [Unknown]
  - Dehydration [Unknown]
  - Hyperhidrosis [Unknown]
  - Cold sweat [Unknown]
  - Presyncope [Unknown]
  - Mood swings [Unknown]
  - Crying [Unknown]
  - Irritability [Unknown]
  - Tremor [Unknown]

NARRATIVE: CASE EVENT DATE: 20140224
